FAERS Safety Report 9852068 (Version 2)
Quarter: 2014Q1

REPORT INFORMATION
  Report Type: Spontaneous
  Country: US (occurrence: US)
  Receive Date: 20140129
  Receipt Date: 20140312
  Transmission Date: 20141002
  Serious: No
  Sender: FDA-Public Use
  Company Number: US-PFIZER INC-2014021976

PATIENT
  Age: 75 Year
  Sex: Female

DRUGS (1)
  1. DOXAZOSIN MESILATE [Suspect]
     Dosage: UNK

REACTIONS (6)
  - Drug hypersensitivity [Unknown]
  - Vertigo [Unknown]
  - Arthralgia [Unknown]
  - Dyspnoea [Unknown]
  - Local swelling [Unknown]
  - Joint swelling [Unknown]
